FAERS Safety Report 13572978 (Version 1)
Quarter: 2017Q2

REPORT INFORMATION
  Report Type: Spontaneous
  Country: US (occurrence: US)
  Receive Date: 20170523
  Receipt Date: 20170523
  Transmission Date: 20170830
  Serious: No
  Sender: FDA-Public Use
  Company Number: US-NOVOPROD-500703

PATIENT
  Age: 7 Year
  Sex: Female

DRUGS (1)
  1. NORDITROPIN [Suspect]
     Active Substance: SOMATROPIN
     Indication: PRODUCT USED FOR UNKNOWN INDICATION
     Dosage: UNK
     Route: 058
     Dates: start: 20160626

REACTIONS (3)
  - Abdominal pain upper [Unknown]
  - Somnolence [Unknown]
  - Vomiting [Unknown]

NARRATIVE: CASE EVENT DATE: 20160626
